FAERS Safety Report 9162788 (Version 1)
Quarter: 2013Q1

REPORT INFORMATION
  Report Type: Spontaneous
  Country: US (occurrence: None)
  Receive Date: 20130313
  Receipt Date: 20130313
  Transmission Date: 20140127
  Serious: No
  Sender: FDA-Public Use
  Company Number: None

PATIENT
  Age: 48 Year
  Sex: Female
  Weight: 63.05 kg

DRUGS (1)
  1. CIPROFLOXACIN 500 MG BAY [Suspect]
     Route: 048
     Dates: start: 20130211, end: 20130213

REACTIONS (8)
  - Pain [None]
  - Swelling [None]
  - Pain in extremity [None]
  - Pain in extremity [None]
  - Arthralgia [None]
  - Chemical burn of skin [None]
  - Nervous system disorder [None]
  - Muscular weakness [None]
